FAERS Safety Report 9153888 (Version 2)
Quarter: 2013Q1

REPORT INFORMATION
  Report Type: Spontaneous
  Country: US (occurrence: US)
  Receive Date: 20130311
  Receipt Date: 20130328
  Transmission Date: 20140127
  Serious: No
  Sender: FDA-Public Use
  Company Number: US-VERTEX PHARMACEUTICALS INC.-2013-003215

PATIENT
  Sex: Male
  Weight: 61 kg

DRUGS (24)
  1. INCIVEK [Suspect]
     Indication: HEPATITIS C
     Dosage: 750 MG, TID
     Route: 048
     Dates: start: 20130211, end: 20130301
  2. INCIVEK [Suspect]
     Dosage: UNK
     Dates: start: 201303
  3. PEGASYS [Suspect]
     Indication: HEPATITIS C
     Dosage: 180 ?G, QW
     Route: 058
     Dates: start: 20130211, end: 20130301
  4. PEGASYS [Suspect]
     Dosage: UNK
     Dates: start: 201303
  5. RIBASPHERE [Suspect]
     Indication: HEPATITIS C
     Dosage: 600 MG QAM, 400 MG QPM
     Route: 048
     Dates: start: 20130211, end: 20130301
  6. RIBASPHERE [Suspect]
     Dosage: UNK
     Dates: start: 201303
  7. DEXILANT [Concomitant]
     Dosage: UNK, QD
  8. ADVAIR [Concomitant]
     Dosage: 1 DF, BID
  9. ALBUTEROL SULFATE [Concomitant]
     Dosage: 2 UNK, EVERY SIX HOURS
  10. ASPIRINE EC [Concomitant]
     Dosage: 81 MG, QD
  11. LISINOPRIL [Concomitant]
     Dosage: 20 MG, QD
  12. MULTIVITAMINS [Concomitant]
     Dosage: 1 DF, QD
  13. PERCOCET [Concomitant]
     Dosage: 1 DF, PRN
  14. XANAX [Concomitant]
     Dosage: 1 MG, TID
  15. ZANTAC [Concomitant]
     Dosage: 150 MG, QD
  16. DEXLANSOPRAZOLE [Concomitant]
     Dosage: 60 MG, QD
  17. FERROUS SULFATE [Concomitant]
     Dosage: 325 MG, TID
  18. HYDROMET [Concomitant]
     Dosage: 5 ML, AT BEDTIME
  19. MOBIC [Concomitant]
     Dosage: 15 MG, QD
  20. FLEXERIL [Concomitant]
     Dosage: 10 MG, TID
  21. PROMETHAZINE HCL [Concomitant]
     Dosage: 25 MG, EVERY SIX HOURS
  22. ALBUTEROL [Concomitant]
     Dosage: UNK, PRN
  23. ACYCLOVIR [Concomitant]
     Dosage: 200 MG, FIVE TIMES DAILY
  24. ATROVENT HFA [Concomitant]
     Dosage: UNK, PRN

REACTIONS (5)
  - Stomatitis [Not Recovered/Not Resolved]
  - Mouth ulceration [Recovered/Resolved]
  - Glossodynia [Unknown]
  - Feeling hot [Unknown]
  - Rash maculo-papular [Recovered/Resolved]
